FAERS Safety Report 6983762-9 (Version None)
Quarter: 2010Q3

REPORT INFORMATION
  Report Type: 
  Country: None (occurrence: None)
  Receive Date: 20100914
  Receipt Date: 20090312
  Transmission Date: 20110219
  Serious: No
  Sender: FDA-Public Use
  Company Number: US-WYE-H08004609

PATIENT
  Age: 80 Year
  Sex: Female
  Weight: 61.29 kg

DRUGS (5)
  1. ADVIL LIQUI-GELS [Suspect]
     Indication: ANALGESIC THERAPY
     Dosage: 1 TABLET TWICE
     Route: 048
     Dates: start: 20090128, end: 20090128
  2. ADVIL LIQUI-GELS [Suspect]
     Indication: OSTEOARTHRITIS
  3. XALATAN [Concomitant]
  4. TRANDOLAPRIL [Concomitant]
  5. THYROID [Concomitant]

REACTIONS (5)
  - CONDITION AGGRAVATED [None]
  - DRUG EFFECT DECREASED [None]
  - PAIN [None]
  - POLLAKIURIA [None]
  - URINARY INCONTINENCE [None]
